FAERS Safety Report 25865092 (Version 1)
Quarter: 2025Q3

REPORT INFORMATION
  Report Type: Spontaneous
  Country: US (occurrence: None)
  Receive Date: 20250929
  Receipt Date: 20250929
  Transmission Date: 20251020
  Serious: Yes (Hospitalization)
  Sender: FDA-CTU
  Company Number: None

PATIENT
  Sex: Male

DRUGS (2)
  1. HYRIMOZ [Suspect]
     Active Substance: ADALIMUMAB-ADAZ
     Indication: Uveitis
     Route: 058
     Dates: start: 20240626
  2. HYRIMOZ PEN PSOR STRT [Concomitant]

REACTIONS (2)
  - Constipation [None]
  - Gastrointestinal obstruction [None]
